FAERS Safety Report 12943068 (Version 3)
Quarter: 2016Q4

REPORT INFORMATION
  Report Type: Spontaneous
  Country: JP (occurrence: JP)
  Receive Date: 20161115
  Receipt Date: 20161220
  Transmission Date: 20170207
  Serious: Yes (Hospitalization, Other)
  Sender: FDA-Public Use
  Company Number: JP-INDIVIOR LIMITED-INDV-096505-2016

PATIENT
  Age: 82 Year
  Sex: Female

DRUGS (1)
  1. LEPETAN [Suspect]
     Active Substance: BUPRENORPHINE HYDROCHLORIDE
     Indication: BACK PAIN
     Dosage: 0.4 MG, TID
     Route: 054
     Dates: end: 201611

REACTIONS (4)
  - Condition aggravated [Unknown]
  - Drug dependence [Recovered/Resolved]
  - Renal disorder [Unknown]
  - Off label use [Recovered/Resolved]

NARRATIVE: CASE EVENT DATE: 20161108
